FAERS Safety Report 7577287-X (Version None)
Quarter: 2011Q2

REPORT INFORMATION
  Report Type: 
  Country: None (occurrence: None)
  Receive Date: 20110628
  Receipt Date: 20110613
  Transmission Date: 20111010
  Serious: Yes (Other)
  Sender: FDA-Public Use
  Company Number: US-BAYER-2011-028889

PATIENT
  Sex: Male
  Weight: 56.4 kg

DRUGS (24)
  1. MAGNEVIST [Suspect]
     Dosage: UNK
     Dates: start: 20040918, end: 20040918
  2. OMNISCAN [Suspect]
  3. MAGNEVIST [Suspect]
  4. OMNISCAN [Suspect]
     Indication: NUCLEAR MAGNETIC RESONANCE IMAGING
     Dosage: UNK
     Dates: start: 20050510, end: 20050510
  5. NIFEDIPINE [Concomitant]
  6. CLONIDINE [Concomitant]
  7. LISINOPRIL [Concomitant]
  8. MAGNEVIST [Suspect]
     Indication: ANGIOGRAM
     Dosage: UNK
     Route: 042
     Dates: start: 20040916, end: 20040916
  9. OMNISCAN [Suspect]
  10. GADOLINIUM IN UNSPECIFIED DRUG [Suspect]
     Indication: NUCLEAR MAGNETIC RESONANCE IMAGING
     Dosage: 40 ML, ONCE
     Route: 042
     Dates: start: 20051209, end: 20051209
  11. COREG [Concomitant]
  12. MAGNEVIST [Suspect]
     Dosage: 4 ML, ONCE
     Route: 042
     Dates: start: 20060616, end: 20060616
  13. METOPROLOL TARTRATE [Concomitant]
  14. NORVASC [Concomitant]
  15. CAPTOPRIL [Concomitant]
  16. MAGNEVIST [Suspect]
     Indication: VENOGRAM
     Dosage: UNK
     Dates: start: 20051005, end: 20051005
  17. GADOLINIUM IN UNSPECIFIED DRUG [Suspect]
     Indication: ANGIOGRAM
  18. PROCRIT [Concomitant]
  19. MAGNEVIST [Suspect]
     Indication: NUCLEAR MAGNETIC RESONANCE IMAGING BRAIN
     Dosage: UNK
     Dates: start: 20040917, end: 20040917
  20. MAGNEVIST [Suspect]
     Dosage: UNK
     Dates: start: 20050517, end: 20050517
  21. OMNISCAN [Suspect]
     Indication: ANGIOGRAM
  22. RENAGEL [Concomitant]
  23. MAGNEVIST [Suspect]
     Indication: NUCLEAR MAGNETIC RESONANCE IMAGING
     Dosage: UNK
     Route: 042
     Dates: start: 20040911, end: 20040911
  24. LABETALOL HCL [Concomitant]

REACTIONS (12)
  - ABASIA [None]
  - SKIN HYPERTROPHY [None]
  - ACTIVITIES OF DAILY LIVING IMPAIRED [None]
  - JOINT RANGE OF MOTION DECREASED [None]
  - SKIN HYPERPIGMENTATION [None]
  - WHEELCHAIR USER [None]
  - NEPHROGENIC SYSTEMIC FIBROSIS [None]
  - ARTHRALGIA [None]
  - JOINT CONTRACTURE [None]
  - SKIN INDURATION [None]
  - PAIN IN EXTREMITY [None]
  - TENDON DISORDER [None]
